FAERS Safety Report 10659122 (Version 1)
Quarter: 2014Q4

REPORT INFORMATION
  Report Type: Spontaneous
  Country: US (occurrence: None)
  Receive Date: 20141209
  Receipt Date: 20141209
  Transmission Date: 20150529
  Serious: Yes (Hospitalization)
  Sender: FDA-Public Use
  Company Number: 409890

PATIENT
  Age: 54 Year
  Sex: Male
  Weight: 88.4 kg

DRUGS (2)
  1. ANTIBIOTIC (CHLORAMPHENICOL) [Concomitant]
  2. NOVOLOG MIX 70/30 [Suspect]
     Active Substance: INSULIN ASPART
     Indication: TYPE 2 DIABETES MELLITUS
     Dosage: SLIDING SCALE
     Route: 058
     Dates: start: 2014

REACTIONS (2)
  - Blood glucose increased [None]
  - Incorrect product storage [None]

NARRATIVE: CASE EVENT DATE: 201404
